FAERS Safety Report 21819209 (Version 2)
Quarter: 2023Q1

REPORT INFORMATION
  Report Type: Report from Study
  Country: US (occurrence: US)
  Receive Date: 20230104
  Receipt Date: 20230110
  Transmission Date: 20230418
  Serious: Yes (Other)
  Sender: FDA-Public Use
  Company Number: US-GW PHARMA-2022-US-038618

PATIENT
  Sex: Female
  Weight: 48 kg

DRUGS (10)
  1. EPIDIOLEX [Suspect]
     Active Substance: CANNABIDIOL
     Indication: Epilepsy
     Dosage: 11 MILLILITER, G-TUBE
     Dates: start: 202204
  2. EPIDIOLEX [Suspect]
     Active Substance: CANNABIDIOL
     Indication: Focal dyscognitive seizures
     Dosage: 5.5 MILLILITER, BID
     Dates: start: 20221221
  3. EPIDIOLEX [Suspect]
     Active Substance: CANNABIDIOL
     Indication: Partial seizures
     Dosage: 5.5 MILLILITER, BID
     Dates: start: 202204
  4. EPIDIOLEX [Suspect]
     Active Substance: CANNABIDIOL
     Indication: Lennox-Gastaut syndrome
  5. EPIDIOLEX [Suspect]
     Active Substance: CANNABIDIOL
     Indication: Seizure
  6. XCOPRI [Concomitant]
     Active Substance: CENOBAMATE
     Indication: Lennox-Gastaut syndrome
  7. NAYZILAM [Concomitant]
     Active Substance: MIDAZOLAM
     Indication: Product used for unknown indication
  8. CLONAZEPAM [Concomitant]
     Active Substance: CLONAZEPAM
     Indication: Product used for unknown indication
  9. VIMPAT [Concomitant]
     Active Substance: LACOSAMIDE
     Indication: Product used for unknown indication
  10. LEVETIRACETAM [Concomitant]
     Active Substance: LEVETIRACETAM
     Indication: Product used for unknown indication

REACTIONS (11)
  - Loss of consciousness [Unknown]
  - Gait disturbance [Unknown]
  - Motor dysfunction [Unknown]
  - Illness [Unknown]
  - Feeling drunk [Unknown]
  - Mental status changes [Unknown]
  - Emotional distress [Unknown]
  - Hypokinesia [Unknown]
  - Off label use [Unknown]
  - Product dose omission issue [Unknown]
  - Product contamination [Unknown]
